FAERS Safety Report 13372816 (Version 1)
Quarter: 2017Q1

REPORT INFORMATION
  Report Type: Spontaneous
  Country: US (occurrence: US)
  Receive Date: 20170325
  Receipt Date: 20170325
  Transmission Date: 20170429
  Serious: No
  Sender: FDA-Public Use
  Company Number: None

PATIENT
  Age: 75 Year
  Sex: Female
  Weight: 97.2 kg

DRUGS (11)
  1. ESOMEPRAZOLE [Suspect]
     Active Substance: ESOMEPRAZOLE
     Indication: GASTRIC MUCOSA ERYTHEMA
     Dosage: ?          QUANTITY:1 CAPSULE(S);?
     Route: 048
  2. IRBESARTIM [Concomitant]
  3. ESOMEPRAZOLE [Suspect]
     Active Substance: ESOMEPRAZOLE
     Indication: GASTROOESOPHAGEAL REFLUX DISEASE
     Dosage: ?          QUANTITY:1 CAPSULE(S);?
     Route: 048
  4. RANITIDINE. [Suspect]
     Active Substance: RANITIDINE
     Indication: GASTROOESOPHAGEAL REFLUX DISEASE
     Dosage: ?          QUANTITY:3 TABLET(S);?
     Route: 048
  5. RANITIDINE. [Suspect]
     Active Substance: RANITIDINE
     Indication: HIATUS HERNIA
     Dosage: ?          QUANTITY:3 TABLET(S);?
     Route: 048
  6. RANITIDINE. [Suspect]
     Active Substance: RANITIDINE
     Indication: BARRETT^S OESOPHAGUS
     Dosage: ?          QUANTITY:3 TABLET(S);?
     Route: 048
  7. ACIDOPHILUS [Concomitant]
     Active Substance: LACTOBACILLUS ACIDOPHILUS
  8. RANITIDINE. [Suspect]
     Active Substance: RANITIDINE
     Indication: ULCER
     Dosage: ?          QUANTITY:3 TABLET(S);?
     Route: 048
  9. SERTRALINE [Concomitant]
     Active Substance: SERTRALINE HYDROCHLORIDE
  10. ESOMEPRAZOLE [Suspect]
     Active Substance: ESOMEPRAZOLE
     Indication: BARRETT^S OESOPHAGUS
     Dosage: ?          QUANTITY:1 CAPSULE(S);?
     Route: 048
  11. ESOMEPRAZOLE [Suspect]
     Active Substance: ESOMEPRAZOLE
     Indication: HIATUS HERNIA
     Dosage: ?          QUANTITY:1 CAPSULE(S);?
     Route: 048

REACTIONS (6)
  - Abdominal pain upper [None]
  - Drug intolerance [None]
  - Gait disturbance [None]
  - Asthenia [None]
  - Fall [None]
  - Myalgia [None]

NARRATIVE: CASE EVENT DATE: 20170107
